FAERS Safety Report 13939125 (Version 1)
Quarter: 2017Q3

REPORT INFORMATION
  Report Type: Spontaneous
  Country: US (occurrence: US)
  Receive Date: 20170906
  Receipt Date: 20170906
  Transmission Date: 20171127
  Serious: No
  Sender: FDA-Public Use
  Company Number: US-TEVA-803226ACC

PATIENT
  Age: 16 Year
  Sex: Female
  Weight: 49.94 kg

DRUGS (1)
  1. PLAN B ONE-STEP [Suspect]
     Active Substance: LEVONORGESTREL
     Indication: POST COITAL CONTRACEPTION
     Dates: start: 20170822, end: 20170822

REACTIONS (4)
  - Breast tenderness [Unknown]
  - Intentional product misuse [Unknown]
  - Dysmenorrhoea [Unknown]
  - Prescription drug used without a prescription [Unknown]
